FAERS Safety Report 4322568-6 (Version None)
Quarter: 2004Q1

REPORT INFORMATION
  Report Type: 
  Country: None (occurrence: None)
  Receive Date: 20040319
  Receipt Date: 20040225
  Transmission Date: 20041129
  Serious: Yes (Hospitalization)
  Sender: FDA-Public Use
  Company Number: 04P-062-0250040-00

PATIENT
  Age: 11 Year
  Sex: Female

DRUGS (4)
  1. SEVORANE LIQUID FOR INHALATION (ULTANE LIQUID FOR INHALATION) (SEVOFLU [Suspect]
     Indication: MAINTENANCE OF ANAESTHESIA
     Dosage: INHALATION
     Route: 055
     Dates: start: 20040101, end: 20040101
  2. PROPOFOL [Concomitant]
  3. ALFENTANIL [Concomitant]
  4. CISATRACURIUM [Concomitant]

REACTIONS (14)
  - BLOOD BILIRUBIN INCREASED [None]
  - C-REACTIVE PROTEIN INCREASED [None]
  - DECUBITUS ULCER [None]
  - HEPATIC ENZYME INCREASED [None]
  - HEPATITIS [None]
  - HEPATOTOXICITY [None]
  - LEUKOCYTOSIS [None]
  - NITRITE URINE PRESENT [None]
  - ORAL CANDIDIASIS [None]
  - POST PROCEDURAL COMPLICATION [None]
  - POSTOPERATIVE INFECTION [None]
  - SHIFT TO THE LEFT [None]
  - STUPOR [None]
  - URINARY TRACT INFECTION [None]
